FAERS Safety Report 8144104-9 (Version None)
Quarter: 2012Q1

REPORT INFORMATION
  Report Type: 
  Country: None (occurrence: None)
  Receive Date: 20120217
  Receipt Date: 20120209
  Transmission Date: 20120608
  Serious: Yes (Hospitalization, Other)
  Sender: FDA-Public Use
  Company Number: US-SANOFI-AVENTIS-2012SA009239

PATIENT
  Age: 74 Year
  Sex: Male

DRUGS (7)
  1. SOLOSTAR [Suspect]
  2. APIDRA [Suspect]
     Dosage: THREE TIMES DAILY WITH MEALS
     Route: 058
  3. APIDRA [Suspect]
     Dosage: INCREASED TO 35 UNITS AT LUNCH
     Route: 058
     Dates: start: 20120207
  4. LANTUS [Suspect]
     Dosage: DOSE:45 UNIT(S)
     Route: 058
  5. LANTUS [Suspect]
     Dosage: DOSE:50 UNIT(S)
     Route: 058
  6. SOLOSTAR [Suspect]
  7. APIDRA [Suspect]
     Dosage: 20 U AT BREAKFAST , 25 U AT LUNCH, AND 25 AT DINNER
     Route: 058
     Dates: start: 20111201

REACTIONS (4)
  - CELLULITIS [None]
  - BRADYCARDIA [None]
  - BLOOD GLUCOSE DECREASED [None]
  - BLOOD GLUCOSE INCREASED [None]
